FAERS Safety Report 6023740-X (Version None)
Quarter: 2008Q4

REPORT INFORMATION
  Report Type: 
  Country: None (occurrence: None)
  Receive Date: 20081223
  Receipt Date: 20081209
  Transmission Date: 20090506
  Serious: Yes (Death, Hospitalization)
  Sender: FDA-Public Use
  Company Number: DSA_32925_2008

PATIENT
  Sex: Male

DRUGS (1)
  1. TETRABENAZINE (TETRABENAZINE) [Suspect]
     Indication: HUNTINGTON'S CHOREA
     Dosage: (37.5 MG)
     Dates: start: 20081115, end: 20081117

REACTIONS (2)
  - BLOOD DISORDER [None]
  - RASH [None]
